FAERS Safety Report 5921319-9 (Version None)
Quarter: 2008Q4

REPORT INFORMATION
  Report Type: 
  Country: None (occurrence: None)
  Receive Date: 20081016
  Receipt Date: 20081013
  Transmission Date: 20090506
  Serious: Yes (Other)
  Sender: FDA-Public Use
  Company Number: GB-MERCK-0801GBR00066

PATIENT
  Age: 69 Year
  Sex: Male

DRUGS (1)
  1. PROSCAR [Suspect]
     Route: 048
     Dates: start: 20071124, end: 20071201

REACTIONS (1)
  - TESTICULAR SWELLING [None]
